FAERS Safety Report 5460604-4 (Version None)
Quarter: 2007Q3

REPORT INFORMATION
  Report Type: 
  Country: None (occurrence: None)
  Receive Date: 20070919
  Receipt Date: 20070907
  Transmission Date: 20080115
  Serious: Yes (Other)
  Sender: FDA-Public Use
  Company Number: DE-PFIZER INC-2007075386

PATIENT
  Age: 71 Year
  Sex: Male

DRUGS (2)
  1. SU-011,248 [Suspect]
     Indication: RENAL CELL CARCINOMA STAGE UNSPECIFIED
     Dosage: DAILY DOSE:50MG-FREQ:CYCLIC QD: 4 WEEKS ON AND 2 WEEKS OFF
     Route: 048
  2. GENERAL NUTRIENTS/HERBAL NOS/MINERALS NOS/VITAMINS NOS [Interacting]
     Route: 048

REACTIONS (3)
  - DRUG INTERACTION [None]
  - HYPOTHYROIDISM [None]
  - PALMAR-PLANTAR ERYTHRODYSAESTHESIA SYNDROME [None]
